FAERS Safety Report 5727691-7 (Version None)
Quarter: 2008Q2

REPORT INFORMATION
  Report Type: 
  Country: None (occurrence: None)
  Receive Date: 20080501
  Receipt Date: 20070702
  Transmission Date: 20081010
  Serious: Yes (Other)
  Sender: FDA-Public Use
  Company Number: PHEH2007US09553

PATIENT
  Sex: Female

DRUGS (1)
  1. LOTREL [Suspect]
     Dosage: ORAL
     Route: 048

REACTIONS (1)
  - PHARYNGEAL OEDEMA [None]
